FAERS Safety Report 22394166 (Version 2)
Quarter: 2023Q2

REPORT INFORMATION
  Report Type: Spontaneous
  Country: CZ (occurrence: CZ)
  Receive Date: 20230601
  Receipt Date: 20230615
  Transmission Date: 20230721
  Serious: No
  Sender: FDA-Public Use
  Company Number: CZ-Zentiva-2023-ZT-012744

PATIENT
  Age: 70 Year
  Sex: Male

DRUGS (8)
  1. VENETOCLAX [Suspect]
     Active Substance: VENETOCLAX
     Indication: Acute myeloid leukaemia recurrent
     Dosage: VEN WAS REDUCED TO 100 MG DAILY
     Route: 048
  2. VENETOCLAX [Suspect]
     Active Substance: VENETOCLAX
     Indication: Acute myeloid leukaemia recurrent
     Dosage: 1ST CYCLE WITH AZACITIDINE
     Route: 048
     Dates: start: 202209
  3. VENETOCLAX [Suspect]
     Active Substance: VENETOCLAX
     Indication: Acute myeloid leukaemia recurrent
     Dosage: 5 CYCLES UNTIL APR 2023, WITH GRADUAL DOSE REDUCTION TO 5 PLUS 14 (AZA PLUS VEN)
     Route: 048
     Dates: end: 202304
  4. VENETOCLAX [Suspect]
     Active Substance: VENETOCLAX
     Indication: Acute myeloid leukaemia recurrent
     Route: 048
  5. AZACITIDINE [Suspect]
     Active Substance: AZACITIDINE
     Indication: Acute myeloid leukaemia recurrent
     Dosage: WITH GRADUAL DOSE REDUCTION TO 5 PLUS 14 (AZA PLUS VEN)
     Route: 065
     Dates: end: 202304
  6. AZACITIDINE [Suspect]
     Active Substance: AZACITIDINE
     Indication: Acute myeloid leukaemia recurrent
     Route: 065
     Dates: start: 202209
  7. AZACITIDINE [Suspect]
     Active Substance: AZACITIDINE
     Indication: Acute myeloid leukaemia recurrent
     Route: 065
  8. Posaconzole [Concomitant]
     Indication: Antifungal prophylaxis

REACTIONS (2)
  - Off label use [Unknown]
  - Cytopenia [Recovered/Resolved]
